FAERS Safety Report 8031181-9 (Version None)
Quarter: 2012Q1

REPORT INFORMATION
  Report Type: 
  Country: None (occurrence: None)
  Receive Date: 20120109
  Receipt Date: 20120104
  Transmission Date: 20120608
  Serious: Yes (Other)
  Sender: FDA-Public Use
  Company Number: HU-PFIZER INC-2012004175

PATIENT
  Age: 7 Year
  Sex: Female

DRUGS (5)
  1. METHYLPREDNISOLONE [Suspect]
     Dosage: 5 MG, 1X/DAY
     Route: 048
  2. ACTEMRA [Suspect]
  3. SOLU-MEDROL [Suspect]
     Indication: JUVENILE ARTHRITIS
     Dosage: 250 MG FOR 4 DAYS
     Route: 041
  4. METHOTREXATE SODIUM [Suspect]
     Dosage: 10 MG, WEEKLY
  5. ENBREL [Suspect]
     Indication: JUVENILE ARTHRITIS

REACTIONS (5)
  - DRUG INEFFECTIVE [None]
  - VASCULITIS [None]
  - GASTROENTERITIS SALMONELLA [None]
  - RASH ERYTHEMATOUS [None]
  - RASH [None]
